FAERS Safety Report 9463487 (Version 1)
Quarter: 2013Q3

REPORT INFORMATION
  Report Type: Spontaneous
  Country: US (occurrence: US)
  Receive Date: 20130819
  Receipt Date: 20130819
  Transmission Date: 20140515
  Serious: No
  Sender: FDA-Public Use
  Company Number: US-BIOGENIDEC-2013BI076931

PATIENT
  Sex: Female

DRUGS (1)
  1. TYSABRI [Suspect]
     Indication: MULTIPLE SCLEROSIS
     Route: 042
     Dates: start: 20111222

REACTIONS (8)
  - Poor quality sleep [Not Recovered/Not Resolved]
  - Burnout syndrome [Not Recovered/Not Resolved]
  - Confusional state [Unknown]
  - Nervousness [Unknown]
  - Disorientation [Not Recovered/Not Resolved]
  - Judgement impaired [Unknown]
  - Fatigue [Recovered/Resolved]
  - Road traffic accident [Not Recovered/Not Resolved]
